APPROVED DRUG PRODUCT: PANTOPRAZOLE SODIUM
Active Ingredient: PANTOPRAZOLE SODIUM
Strength: EQ 20MG BASE
Dosage Form/Route: TABLET, DELAYED RELEASE;ORAL
Application: A090797 | Product #001
Applicant: ACTAVIS TOTOWA LLC
Approved: Feb 7, 2011 | RLD: No | RS: No | Type: DISCN